FAERS Safety Report 9449696 (Version 5)
Quarter: 2016Q2

REPORT INFORMATION
  Report Type: Report from Study
  Country: US (occurrence: US)
  Receive Date: 20130809
  Receipt Date: 20160530
  Transmission Date: 20160815
  Serious: Yes (Hospitalization)
  Sender: FDA-Public Use
  Company Number: US-ROCHE-1258296

PATIENT
  Sex: Female
  Weight: 104.42 kg

DRUGS (50)
  1. RITUXAN [Suspect]
     Active Substance: RITUXIMAB
     Indication: POLYNEUROPATHY
     Dosage: 375 MG/M2
     Route: 042
     Dates: start: 20120308
  2. COLACE [Concomitant]
     Active Substance: DOCUSATE SODIUM
     Route: 048
     Dates: start: 20121112
  3. ZOLPIDEM TARTRATE. [Concomitant]
     Active Substance: ZOLPIDEM TARTRATE
     Dosage: BEFORE BED
     Route: 048
     Dates: start: 20121112
  4. LYRICA [Concomitant]
     Active Substance: PREGABALIN
     Dosage: 1CAP IN A.M., 1 CAP AT NOON, 4 CAPS AT NIGHT
     Route: 065
     Dates: start: 20120712
  5. POTASSIUM CHLORIDE. [Concomitant]
     Active Substance: POTASSIUM CHLORIDE
     Route: 065
  6. RITUXAN [Suspect]
     Active Substance: RITUXIMAB
     Indication: CHRONIC INFLAMMATORY DEMYELINATING POLYRADICULONEUROPATHY
  7. OXYCODONE [Concomitant]
     Active Substance: OXYCODONE
     Dosage: TAB CR 10MG BIDP
     Route: 048
     Dates: start: 20130531
  8. ALBUTEROL SULFATE. [Concomitant]
     Active Substance: ALBUTEROL SULFATE
     Dosage: NEBULISER 1 VIAL EVERY 4 HOURS
     Route: 065
     Dates: start: 20130425
  9. RESTASIS [Concomitant]
     Active Substance: CYCLOSPORINE
     Dosage: 1 IN EACH AFFECTED EYE
     Route: 065
  10. ALBUTEROL. [Concomitant]
     Active Substance: ALBUTEROL
     Dosage: 3 ML AMPOULEL. NEB 1 NEBULISER FOR HYPERTENSION, 4 TIMES A DAY120 NEB, PUFFS
     Route: 065
  11. ALBUTEROL. [Concomitant]
     Active Substance: ALBUTEROL
     Dosage: 2 PUFFS AS NEEDED
     Route: 065
  12. PREDNISONE. [Concomitant]
     Active Substance: PREDNISONE
     Indication: NEURALGIA
  13. PREDNISONE. [Concomitant]
     Active Substance: PREDNISONE
     Indication: INFLAMMATION
  14. CALTRATE [Concomitant]
     Active Substance: CALCIUM CARBONATE
     Route: 065
  15. BUDESONIDE. [Concomitant]
     Active Substance: BUDESONIDE
     Dosage: 0.25MG /2ML INHALATION 1 NEBULISER
     Route: 065
  16. BENZONATATE. [Concomitant]
     Active Substance: BENZONATATE
     Dosage: THRICE A DAY #6 CAPSULE
     Route: 048
  17. CELEXA [Concomitant]
     Active Substance: CITALOPRAM HYDROBROMIDE
     Route: 048
     Dates: start: 20120124
  18. FLOVENT HFA [Concomitant]
     Active Substance: FLUTICASONE PROPIONATE
     Dosage: 2 PUFFS TWICE A DAY
     Route: 065
  19. HYDROCODONE BITARTRATE/ACETAMINOPHEN [Concomitant]
     Active Substance: ACETAMINOPHEN\HYDROCODONE BITARTRATE
     Route: 048
  20. RITUXAN [Suspect]
     Active Substance: RITUXIMAB
     Indication: AUTONOMIC NEUROPATHY
     Route: 042
     Dates: start: 20150331
  21. MONISTAT [Concomitant]
     Active Substance: MICONAZOLE NITRATE
     Dosage: SUPPS-VAG SUP 200MG PV HS 3 DAYS
     Route: 065
     Dates: start: 20130704
  22. CLOTRIMAZOLE. [Concomitant]
     Active Substance: CLOTRIMAZOLE
     Dosage: TRO 1 TABLET PO 5X/D
     Route: 048
  23. ALPHA LIPOIC ACID [Concomitant]
     Active Substance: .ALPHA.-LIPOIC ACID
     Route: 048
  24. SOLIFENACIN SUCCINATE. [Concomitant]
     Active Substance: SOLIFENACIN SUCCINATE
     Route: 048
  25. GLUCOSAMINE SULFATE [Concomitant]
     Active Substance: GLUCOSAMINE SULFATE
     Route: 048
     Dates: start: 20121112
  26. VITAMIN D3 [Concomitant]
     Active Substance: CHOLECALCIFEROL
     Dosage: UNIT- 4000 IU PO DAILY
     Route: 048
     Dates: start: 20120215
  27. PREDNISONE. [Concomitant]
     Active Substance: PREDNISONE
     Indication: RHEUMATOID ARTHRITIS
     Route: 065
     Dates: start: 201410
  28. LORTAB (UNITED STATES) [Concomitant]
     Dosage: AS NEEDED
     Route: 065
  29. NORTRIPTYLINE HYDROCHLORIDE. [Concomitant]
     Active Substance: NORTRIPTYLINE HYDROCHLORIDE
     Route: 048
  30. TRAMADOL. [Concomitant]
     Active Substance: TRAMADOL
     Dosage: AS NEEDED
     Route: 048
  31. LASIX [Concomitant]
     Active Substance: FUROSEMIDE
     Route: 065
  32. AZATHIOPRINE. [Concomitant]
     Active Substance: AZATHIOPRINE
     Route: 065
  33. RITUXAN [Suspect]
     Active Substance: RITUXIMAB
     Indication: SJOGREN^S SYNDROME
  34. VITAMIN C [Concomitant]
     Active Substance: ASCORBIC ACID
     Route: 048
  35. ALBUTEROL SULFATE. [Concomitant]
     Active Substance: ALBUTEROL SULFATE
     Dosage: HFA-AER 2 PUFFS INH PRN #1 INHALER
     Route: 065
     Dates: start: 20130328
  36. TRAMADOL HCL [Concomitant]
     Active Substance: TRAMADOL HYDROCHLORIDE
     Dosage: TBMP. 24HR 1-2 TAB PO DAILY
     Route: 048
     Dates: start: 20130416
  37. CYMBALTA [Concomitant]
     Active Substance: DULOXETINE HYDROCHLORIDE
     Route: 065
  38. OXYCONTIN [Concomitant]
     Active Substance: OXYCODONE HYDROCHLORIDE
     Indication: NEURALGIA
     Dosage: 1 TO 2 TIMES A DAY
     Route: 065
  39. SINGULAIR [Concomitant]
     Active Substance: MONTELUKAST SODIUM
  40. IMURAN [Concomitant]
     Active Substance: AZATHIOPRINE
     Route: 048
  41. FISH OIL [Concomitant]
     Active Substance: FISH OIL
     Route: 048
  42. FLUCONAZOLE. [Concomitant]
     Active Substance: FLUCONAZOLE
     Route: 065
  43. RITUXAN [Suspect]
     Active Substance: RITUXIMAB
     Indication: RHEUMATOID ARTHRITIS
     Dosage: FOR 4 WEEKS
     Route: 042
  44. FLUTICASONE PROPIONATE. [Concomitant]
     Active Substance: FLUTICASONE PROPIONATE
     Dosage: MCG- 120 PUFFS/INHALER PUFF 1 PUFF INHALE TWICE A DAY, 10.6GM
     Route: 065
     Dates: start: 20130328
  45. OMEGA 3 FATTY ACIDS [Concomitant]
     Active Substance: OMEGA-3 FATTY ACIDS
     Route: 048
  46. OMEPRAZOLE. [Concomitant]
     Active Substance: OMEPRAZOLE
     Route: 065
  47. OXCARBAZEPINE. [Concomitant]
     Active Substance: OXCARBAZEPINE
     Indication: PAIN MANAGEMENT
     Route: 065
  48. HYDROCHLOROTHIAZIDE. [Concomitant]
     Active Substance: HYDROCHLOROTHIAZIDE
     Route: 048
  49. RITALIN [Concomitant]
     Active Substance: METHYLPHENIDATE HYDROCHLORIDE
     Dosage: TWICE A DAY
     Route: 048
  50. CALCIUM CARBONATE. [Concomitant]
     Active Substance: CALCIUM CARBONATE
     Route: 048
     Dates: start: 20121112

REACTIONS (32)
  - Sensory disturbance [Unknown]
  - Sleep disorder [Unknown]
  - Arthralgia [Unknown]
  - Tongue discolouration [Unknown]
  - Balance disorder [Unknown]
  - Abdominal discomfort [Unknown]
  - Fall [Unknown]
  - Dysphagia [Unknown]
  - Muscular weakness [Unknown]
  - Urinary incontinence [Unknown]
  - Rotator cuff syndrome [Unknown]
  - Fatigue [Unknown]
  - Oral pain [Unknown]
  - Pollakiuria [Unknown]
  - Respiratory distress [Unknown]
  - Tongue ulceration [Unknown]
  - Keratitis [Unknown]
  - Dry mouth [Unknown]
  - Productive cough [Unknown]
  - Micturition urgency [Unknown]
  - Oral candidiasis [Unknown]
  - Axonal neuropathy [Unknown]
  - Visual impairment [Unknown]
  - Dysuria [Unknown]
  - Fracture [Unknown]
  - Pain [Unknown]
  - Tremor [Unknown]
  - Dyspnoea [Unknown]
  - Pain in extremity [Unknown]
  - Oedema peripheral [Unknown]
  - Lymphadenopathy [Unknown]
  - Product use issue [Unknown]
